FAERS Safety Report 20651831 (Version 1)
Quarter: 2022Q1

REPORT INFORMATION
  Report Type: Report from Study
  Country: US (occurrence: None)
  Receive Date: 20220330
  Receipt Date: 20220330
  Transmission Date: 20220423
  Serious: Yes (Other)
  Sender: FDA-Public Use
  Company Number: US-Merck Healthcare KGaA-9309039

PATIENT
  Sex: Female

DRUGS (1)
  1. REBIF [Suspect]
     Active Substance: INTERFERON BETA-1A
     Indication: Multiple sclerosis
     Dosage: TAKING REBIF SINCE LAST 10 TO 12 YEARS

REACTIONS (3)
  - Systemic lupus erythematosus [Unknown]
  - Skin lesion [Unknown]
  - Confusional state [Unknown]
